FAERS Safety Report 5979446-6 (Version None)
Quarter: 2008Q4

REPORT INFORMATION
  Report Type: 
  Country: None (occurrence: None)
  Receive Date: 20081126
  Receipt Date: 20081112
  Transmission Date: 20090506
  Serious: Yes (Hospitalization)
  Sender: FDA-Public Use
  Company Number: 2008S1017505

PATIENT
  Age: 78 Year
  Sex: Male
  Weight: 80 kg

DRUGS (3)
  1. NEBIVOLOL HCL [Suspect]
     Dosage: 5 MG; DAILY
  2. BLINDED STUDY MEDICATION (BLINDED THERAPY) [Suspect]
     Indication: CARDIAC FAILURE
     Dosage: DAILY; ORAL
     Route: 048
     Dates: start: 20080220, end: 20080730
  3. RAMIPRIL [Suspect]
     Dosage: 2.5 MG; DAILY

REACTIONS (4)
  - ASTHENIA [None]
  - DYSPNOEA [None]
  - HYPOTENSION [None]
  - LEFT VENTRICULAR FAILURE [None]
